FAERS Safety Report 10367270 (Version 3)
Quarter: 2014Q3

REPORT INFORMATION
  Report Type: Spontaneous
  Country: JP (occurrence: JP)
  Receive Date: 20140807
  Receipt Date: 20140922
  Transmission Date: 20150326
  Serious: Yes (Life-Threatening, Other)
  Sender: FDA-Public Use
  Company Number: JP-009507513-1408JPN001422

PATIENT
  Age: 44 Year
  Sex: Male
  Weight: 66 kg

DRUGS (11)
  1. CANCIDAS [Suspect]
     Active Substance: CASPOFUNGIN ACETATE
     Indication: FEBRILE NEUTROPENIA
     Dosage: 70 MG, QD
     Route: 041
     Dates: start: 20140325, end: 20140325
  2. KYTRIL [Concomitant]
     Active Substance: GRANISETRON HYDROCHLORIDE
     Indication: PROPHYLAXIS OF NAUSEA AND VOMITING
     Dosage: 1 MG, QD
     Route: 051
     Dates: start: 20140331, end: 20140401
  3. ADONA [Concomitant]
     Active Substance: CARBAZOCHROME SODIUM SULFONATE
     Indication: HAEMORRHAGE PROPHYLAXIS
     Dosage: 30 MG, TID
     Route: 048
     Dates: start: 20140324, end: 20140402
  4. NEXIUM [Concomitant]
     Active Substance: ESOMEPRAZOLE MAGNESIUM
     Indication: HAEMORRHAGE PROPHYLAXIS
     Dosage: 20 MG, QD
     Route: 048
     Dates: start: 20140325
  5. ISODINE [Concomitant]
     Active Substance: POVIDONE-IODINE
     Indication: STOMATITIS
     Dosage: 5 GTT, QD, AS OCCASION ARISE, FORMULATION: MWH
     Dates: start: 20140329
  6. CANCIDAS [Suspect]
     Active Substance: CASPOFUNGIN ACETATE
     Indication: FEBRILE NEUTROPENIA
     Dosage: 50 MG, QD
     Route: 041
     Dates: start: 20140326, end: 20140415
  7. ACLACINON [Concomitant]
     Active Substance: ACLARUBICIN HYDROCHLORIDE
     Indication: LEUKAEMIA
     Dosage: 26 MG, QD
     Route: 051
     Dates: start: 20140331, end: 20140401
  8. CALONAL [Concomitant]
     Active Substance: ACETAMINOPHEN
     Indication: ANTIPYRESIS
     Dosage: 600 MG, AS NEEDED
     Route: 048
     Dates: start: 20140325, end: 20140410
  9. CYCLOCIDE [Concomitant]
     Active Substance: CYTARABINE
     Indication: LEUKAEMIA
     Dosage: 19 MG, BID
     Route: 051
     Dates: start: 20140328, end: 20140410
  10. FEBURIC [Concomitant]
     Active Substance: FEBUXOSTAT
     Indication: PROPHYLAXIS
     Dosage: 10 MG, QD
     Route: 048
     Dates: start: 20140325
  11. CEFEPIME HYDROCHLORIDE. [Concomitant]
     Active Substance: CEFEPIME HYDROCHLORIDE
     Dosage: 1 G, TID
     Route: 051
     Dates: start: 20140325, end: 20140415

REACTIONS (3)
  - White blood cell count decreased [Recovered/Resolved]
  - Acute myeloid leukaemia [Not Recovered/Not Resolved]
  - Stomatitis [Not Recovered/Not Resolved]

NARRATIVE: CASE EVENT DATE: 20140325
